FAERS Safety Report 6493600-9 (Version None)
Quarter: 2009Q4

REPORT INFORMATION
  Report Type: 
  Country: None (occurrence: None)
  Receive Date: 20091214
  Receipt Date: 20091201
  Transmission Date: 20100525
  Serious: Yes (Other)
  Sender: FDA-Public Use
  Company Number: A0834147A

PATIENT
  Age: 68 Year
  Sex: Male

DRUGS (1)
  1. AVANDAMET [Suspect]
     Route: 048
     Dates: start: 20091101

REACTIONS (3)
  - DEHYDRATION [None]
  - DIARRHOEA [None]
  - HYPOTENSION [None]
